FAERS Safety Report 7536292-X (Version None)
Quarter: 2011Q2

REPORT INFORMATION
  Report Type: 
  Country: None (occurrence: None)
  Receive Date: 20110608
  Receipt Date: 20110608
  Transmission Date: 20111010
  Serious: No
  Sender: FDA-Public Use
  Company Number: None

PATIENT
  Sex: Female

DRUGS (2)
  1. LISINOPRIL [Suspect]
     Indication: BLOOD PRESSURE INCREASED
     Dosage: ONE A DAY EVERY DAY
     Dates: start: 20101229, end: 20110311
  2. HYDROCHLOROTHIAZIDE [Suspect]
     Indication: BLOOD PRESSURE INCREASED
     Dosage: ONE A DAY EVERY DAY
     Dates: start: 20110311, end: 20110327

REACTIONS (4)
  - RASH [None]
  - SCAB [None]
  - BLISTER [None]
  - ERYTHEMA [None]
